APPROVED DRUG PRODUCT: DOXYCYCLINE HYCLATE
Active Ingredient: DOXYCYCLINE HYCLATE
Strength: EQ 100MG BASE
Dosage Form/Route: CAPSULE;ORAL
Application: A062463 | Product #002
Applicant: HEATHER DRUG CO INC
Approved: Dec 7, 1983 | RLD: No | RS: No | Type: DISCN